FAERS Safety Report 24283685 (Version 1)
Quarter: 2024Q3

REPORT INFORMATION
  Report Type: Spontaneous
  Country: US (occurrence: None)
  Receive Date: 20240905
  Receipt Date: 20240905
  Transmission Date: 20241016
  Serious: Yes (Hospitalization)
  Sender: ENCUBE ETHICALS
  Company Number: US-Encube-001310

PATIENT
  Age: 55 Year
  Sex: Male

DRUGS (7)
  1. METRONIDAZOLE [Suspect]
     Active Substance: METRONIDAZOLE
     Indication: Colitis microscopic
  2. SULFASALAZINE [Concomitant]
     Active Substance: SULFASALAZINE
     Indication: Colitis microscopic
  3. OMEPRAZOLE [Concomitant]
     Active Substance: OMEPRAZOLE
  4. LISINOPRIL [Concomitant]
     Active Substance: LISINOPRIL
     Indication: Hypertension
  5. FLUOXETINE [Concomitant]
     Active Substance: FLUOXETINE HYDROCHLORIDE
     Indication: Depression
  6. INSULIN GLARGINE [Concomitant]
     Active Substance: INSULIN GLARGINE
     Indication: Type 1 diabetes mellitus
  7. GABAPENTIN [Concomitant]
     Active Substance: GABAPENTIN
     Indication: Neuropathy peripheral

REACTIONS (2)
  - Toxic encephalopathy [Recovered/Resolved]
  - Off label use [Unknown]
